FAERS Safety Report 4900717-6 (Version None)
Quarter: 2006Q1

REPORT INFORMATION
  Report Type: 
  Country: None (occurrence: None)
  Receive Date: 20060201
  Receipt Date: 20060120
  Transmission Date: 20060701
  Serious: Yes (Hospitalization, Other)
  Sender: FDA-Public Use
  Company Number: FRWYE318620JAN06

PATIENT
  Age: 72 Year
  Sex: Male

DRUGS (21)
  1. TAZOCILLINE                    (PIPERACILLIN/TAZOBACTAM, INJECTION) [Suspect]
     Indication: PSEUDOMONAS INFECTION
     Dosage: 4 G 4X PER 1 DAY INTRAVENOUS
     Route: 042
     Dates: start: 20051020, end: 20051102
  2. CIPROFLOXACIN [Suspect]
     Indication: PSEUDOMONAS INFECTION
     Dosage: 1500 MG 1X PER 1 DAY ORAL
     Route: 048
     Dates: start: 20051020, end: 20051022
  3. COZAAR [Suspect]
     Indication: ESSENTIAL HYPERTENSION
     Dosage: 50 MG 1X PER 1 DAY ORAL
     Route: 048
     Dates: end: 20051102
  4. GENTAMICIN SULFATE [Suspect]
     Indication: PSEUDOMONAS INFECTION
     Dosage: 160 MG 1X PER 1 DAY IM
     Route: 030
     Dates: start: 20051022, end: 20051026
  5. BRICANYL           (GUAIFENESIN/TERBUTALINE SULFATE) [Concomitant]
  6. ATROVENT [Concomitant]
  7. SOLU-MEDROL [Concomitant]
  8. MUCOMYST [Concomitant]
  9. FUROSEMIDE [Concomitant]
  10. PRIMEPERAN (METOCLOPRAMIDE) [Concomitant]
  11. FLUCONAZOLE [Concomitant]
  12. CORDARONE [Concomitant]
  13. PLAVIX [Concomitant]
  14. DISCOTRINE (GLYCERYL TRINITRATE) [Concomitant]
  15. PRAVASTATIN [Concomitant]
  16. IDEOS (CALCIUM CARBONATE/COLECALCIFEROL) [Concomitant]
  17. OMEPRAZOLE [Concomitant]
  18. STILLNOX (ZOLPIDEM) [Concomitant]
  19. ACETAMINOPHEN W/ PROPOXYPHENE HCL [Concomitant]
  20. DUSPATALIN (MEBEVERINE HYDROCHLORIDE) [Concomitant]
  21. SPASFON             (PHLOROGLUCINOL/TRIMETHYLPHLOROGLUCINOL) [Concomitant]

REACTIONS (5)
  - ANURIA [None]
  - ANXIETY [None]
  - DIALYSIS [None]
  - RENAL FAILURE ACUTE [None]
  - SOMNOLENCE [None]
